FAERS Safety Report 6615595-7 (Version None)
Quarter: 2010Q1

REPORT INFORMATION
  Report Type: 
  Country: None (occurrence: None)
  Receive Date: 20100305
  Receipt Date: 20100222
  Transmission Date: 20100710
  Serious: Yes (Hospitalization)
  Sender: FDA-Public Use
  Company Number: US-BAYER-201012101NA

PATIENT
  Age: 55 Year
  Sex: Male
  Weight: 115 kg

DRUGS (14)
  1. SORAFENIB [Suspect]
     Indication: LIPOSARCOMA
     Dosage: TOTAL DAILY DOSE: 200 MG  UNIT DOSE: 200 MG
     Route: 048
     Dates: start: 20090930, end: 20100117
  2. SORAFENIB [Suspect]
     Dosage: TOTAL DAILY DOSE: 200 MG  UNIT DOSE: 200 MG
     Route: 048
  3. IFOSFAMIDE [Suspect]
     Indication: LIPOSARCOMA
     Dosage: TOTAL DAILY DOSE: 2500 MG/M2
     Route: 042
  4. IFOSFAMIDE [Suspect]
     Dosage: TOTAL DAILY DOSE: 6000 MG
     Dates: start: 20091015, end: 20100108
  5. EPIRUBICIN [Suspect]
     Indication: LIPOSARCOMA
     Dosage: TOTAL DAILY DOSE: 30 MG/M2
     Route: 042
  6. EPIRUBICIN [Suspect]
     Dosage: TOTAL DAILY DOSE: 71 MG
     Dates: start: 20091015, end: 20100117
  7. ASPIRIN [Concomitant]
  8. LISINOPRIL [Concomitant]
     Dates: start: 20091017
  9. SENNA-DOCUSATE [Concomitant]
     Dosage: AS USED: 8.6-50 MG
     Dates: start: 20091015
  10. OXYCODONE HCL [Concomitant]
     Dosage: TOTAL DAILY DOSE: 20 MG
     Route: 048
     Dates: start: 20091015
  11. OXYCODONE HCL [Concomitant]
     Dates: start: 20091215
  12. AMLODIPINE [Concomitant]
     Dosage: TOTAL DAILY DOSE: 10 MG
     Route: 048
     Dates: start: 20100213
  13. DOCUSATE SODIUM [Concomitant]
     Dosage: TOTAL DAILY DOSE: 200 MG
     Route: 048
     Dates: start: 20100106
  14. PROCHLORPERAZINE [Concomitant]
     Dosage: TOTAL DAILY DOSE: 40 MG
     Route: 048
     Dates: start: 20091018

REACTIONS (6)
  - FEBRILE NEUTROPENIA [None]
  - HYPOKALAEMIA [None]
  - HYPOPHOSPHATAEMIA [None]
  - INCISION SITE ABSCESS [None]
  - NEUTROPENIA [None]
  - PYREXIA [None]
